FAERS Safety Report 4706610-6 (Version None)
Quarter: 2005Q3

REPORT INFORMATION
  Report Type: 
  Country: None (occurrence: None)
  Receive Date: 20050705
  Receipt Date: 20030523
  Transmission Date: 20060218
  Serious: Yes (Congenital Anomaly)
  Sender: FDA-Public Use
  Company Number: US-ROCHE-338834

PATIENT
  Sex: Male

DRUGS (3)
  1. ACCUTANE [Suspect]
     Indication: ACNE
     Dates: start: 19820615, end: 19860615
  2. CREAM NOS [Concomitant]
     Indication: ACNE CYSTIC
  3. INJECTIONS FOR ACNE UNSPECIFIED [Concomitant]
     Indication: ACNE CYSTIC

REACTIONS (4)
  - CRYPTORCHISM [None]
  - HYDROCEPHALUS [None]
  - LIMB REDUCTION DEFECT [None]
  - TRANSMISSION OF DRUG VIA SEMEN [None]
